FAERS Safety Report 13563606 (Version 1)
Quarter: 2017Q2

REPORT INFORMATION
  Report Type: Spontaneous
  Country: ZA (occurrence: ZA)
  Receive Date: 20170519
  Receipt Date: 20170519
  Transmission Date: 20170830
  Serious: Yes (Other)
  Sender: FDA-Public Use
  Company Number: ZA-009507513-1705ZAF006175

PATIENT
  Weight: 40 kg

DRUGS (3)
  1. ESMERON [Suspect]
     Active Substance: ROCURONIUM BROMIDE
     Dosage: 50 MG, ONCE
     Dates: start: 20170503
  2. ESMERON [Suspect]
     Active Substance: ROCURONIUM BROMIDE
     Dosage: 50 MG, ONCE (SECOND FULL DOSE)
     Dates: start: 20170503
  3. ESMERON [Suspect]
     Active Substance: ROCURONIUM BROMIDE
     Dosage: UNK (TO UP DOSE), ONCE
     Dates: start: 20170503

REACTIONS (1)
  - Airway complication of anaesthesia [Unknown]

NARRATIVE: CASE EVENT DATE: 20170503
